FAERS Safety Report 5318516-2 (Version None)
Quarter: 2007Q2

REPORT INFORMATION
  Report Type: 
  Country: None (occurrence: None)
  Receive Date: 20070501
  Receipt Date: 20070418
  Transmission Date: 20071010
  Serious: Yes (Disabling)
  Sender: FDA-Public Use
  Company Number: E2020-01102-SP0-GB

PATIENT
  Age: 69 Year
  Sex: Female

DRUGS (5)
  1. ARICEPT [Suspect]
     Indication: DEMENTIA ALZHEIMER'S TYPE
     Dosage: 10 MG, 1 IN 1 D, ORAL
     Route: 048
     Dates: start: 20060701
  2. ARIPIPRAZOLE [Suspect]
     Indication: DEMENTIA ALZHEIMER'S TYPE
     Dosage: SEE IMAGE
     Route: 048
     Dates: start: 20060901, end: 20060101
  3. ARIPIPRAZOLE [Suspect]
     Indication: DEMENTIA ALZHEIMER'S TYPE
     Dosage: SEE IMAGE
     Route: 048
     Dates: start: 20060101
  4. LACTULOSE [Concomitant]
  5. ATENOLOL [Concomitant]

REACTIONS (3)
  - DRUG INTERACTION [None]
  - DYSTONIA [None]
  - TRISMUS [None]
